FAERS Safety Report 7459064-3 (Version None)
Quarter: 2011Q2

REPORT INFORMATION
  Report Type: 
  Country: None (occurrence: None)
  Receive Date: 20110505
  Receipt Date: 20110426
  Transmission Date: 20111010
  Serious: No
  Sender: FDA-Public Use
  Company Number: US-BIOGENIDEC-2011BI007666

PATIENT
  Sex: Female

DRUGS (4)
  1. OMEGA 3 FATTY ACIDS [Concomitant]
  2. PEPCID AC [Concomitant]
     Indication: GASTROOESOPHAGEAL REFLUX DISEASE
     Dates: start: 20100601
  3. TYSABRI [Suspect]
     Indication: MULTIPLE SCLEROSIS
     Route: 042
     Dates: start: 20080111, end: 20101209
  4. PNV [Concomitant]

REACTIONS (2)
  - HEART RATE INCREASED [None]
  - HYPERSENSITIVITY [None]
